FAERS Safety Report 17166461 (Version 1)
Quarter: 2019Q4

REPORT INFORMATION
  Report Type: Spontaneous
  Country: NL (occurrence: BE)
  Receive Date: 20191217
  Receipt Date: 20191217
  Transmission Date: 20200122
  Serious: Yes (Life-Threatening, Other)
  Sender: FDA-Public Use
  Company Number: BE-BAYER-2019-228597

PATIENT
  Age: 39 Year
  Sex: Female
  Weight: 74 kg

DRUGS (1)
  1. MIRENA [Suspect]
     Active Substance: LEVONORGESTREL
     Indication: CONTRACEPTION
     Dosage: 20 MCG/24HR, CONT
     Route: 015
     Dates: start: 2013, end: 20181203

REACTIONS (9)
  - Mood altered [Recovered/Resolved]
  - Headache [Recovered/Resolved]
  - Suicidal ideation [Recovered/Resolved]
  - Breast pain [Recovered/Resolved]
  - Alopecia [Recovered/Resolved]
  - Loss of libido [Recovered/Resolved]
  - Depression [Recovered/Resolved]
  - Weight increased [Recovered/Resolved]
  - Abnormal behaviour [Recovered/Resolved]
